FAERS Safety Report 24790759 (Version 1)
Quarter: 2024Q4

REPORT INFORMATION
  Report Type: Spontaneous
  Country: CH (occurrence: CH)
  Receive Date: 20241230
  Receipt Date: 20241230
  Transmission Date: 20250115
  Serious: Yes (Hospitalization)
  Sender: EISAI
  Company Number: CH-Eisai-EC-2024-181559

PATIENT
  Age: 71 Year
  Sex: Male

DRUGS (5)
  1. LENVATINIB [Suspect]
     Active Substance: LENVATINIB
     Indication: Metastatic renal cell carcinoma
     Route: 048
     Dates: start: 202408
  2. KEYTRUDA [Suspect]
     Active Substance: PEMBROLIZUMAB
     Indication: Metastatic renal cell carcinoma
     Route: 040
     Dates: start: 20241017, end: 202410
  3. INLYTA [Suspect]
     Active Substance: AXITINIB
     Indication: Metastatic renal cell carcinoma
     Route: 048
     Dates: start: 20241017, end: 202410
  4. NIVOLUMAB [Suspect]
     Active Substance: NIVOLUMAB
     Indication: Metastatic renal cell carcinoma
     Route: 040
     Dates: start: 202409, end: 20241002
  5. Yervov [Concomitant]
     Indication: Metastatic renal cell carcinoma
     Route: 065
     Dates: start: 202209, end: 20241002

REACTIONS (5)
  - Encephalitis [Recovering/Resolving]
  - Hypophysitis [Recovering/Resolving]
  - Arthritis [Recovering/Resolving]
  - Dermatitis [Recovering/Resolving]
  - Myocarditis [Recovering/Resolving]

NARRATIVE: CASE EVENT DATE: 20241021
